FAERS Safety Report 21075810 (Version 1)
Quarter: 2022Q3

REPORT INFORMATION
  Report Type: Spontaneous
  Country: BE (occurrence: BE)
  Receive Date: 20220713
  Receipt Date: 20220713
  Transmission Date: 20221026
  Serious: Yes (Other)
  Sender: FDA-Public Use
  Company Number: BE-009507513-2207BEL002861

PATIENT
  Age: 60 Year
  Sex: Male

DRUGS (2)
  1. TEMODAL [Suspect]
     Active Substance: TEMOZOLOMIDE
     Indication: Glioblastoma
     Dosage: 6 CYCLES
     Route: 048
     Dates: start: 20210706, end: 20220328
  2. TEMODAL [Suspect]
     Active Substance: TEMOZOLOMIDE
     Indication: Glioma

REACTIONS (1)
  - Malignant neoplasm progression [Unknown]

NARRATIVE: CASE EVENT DATE: 20220622
